FAERS Safety Report 12228615 (Version 3)
Quarter: 2016Q2

REPORT INFORMATION
  Report Type: Spontaneous
  Country: NO (occurrence: NO)
  Receive Date: 20160401
  Receipt Date: 20160428
  Transmission Date: 20160815
  Serious: Yes (Other)
  Sender: FDA-Public Use
  Company Number: NO-ACTAVIS-2016-06981

PATIENT
  Age: 59 Year
  Sex: Female

DRUGS (3)
  1. DOCETAXEL ACTAVIS [Suspect]
     Active Substance: DOCETAXEL
     Indication: BREAST CANCER
     Dosage: 160 MG, DAILY
     Route: 065
     Dates: start: 20140404, end: 20140404
  2. DOCETAXEL ACTAVIS [Suspect]
     Active Substance: DOCETAXEL
     Dosage: 160 MG, DAILY
     Route: 065
     Dates: start: 20140313, end: 20140313
  3. ZOFRAN [Concomitant]
     Active Substance: ONDANSETRON HYDROCHLORIDE
     Indication: PRODUCT USED FOR UNKNOWN INDICATION
     Dosage: UNK
     Route: 065

REACTIONS (6)
  - Impaired quality of life [Not Recovered/Not Resolved]
  - Pain in extremity [Not Recovered/Not Resolved]
  - Neuropathy peripheral [Not Recovered/Not Resolved]
  - Balance disorder [Not Recovered/Not Resolved]
  - Dizziness [Not Recovered/Not Resolved]
  - Vestibular disorder [Not Recovered/Not Resolved]

NARRATIVE: CASE EVENT DATE: 201404
